FAERS Safety Report 10205055 (Version 1)
Quarter: 2014Q2

REPORT INFORMATION
  Report Type: Spontaneous
  Country: US (occurrence: None)
  Receive Date: 20140527
  Receipt Date: 20140527
  Transmission Date: 20141212
  Serious: Yes (Hospitalization)
  Sender: FDA-Public Use
  Company Number: None

PATIENT
  Age: 40 Year
  Sex: Male

DRUGS (10)
  1. CYCLOPHOSPHAMIDE [Suspect]
     Indication: ALLOGENIC BONE MARROW TRANSPLANTATION THERAPY
     Route: 042
     Dates: start: 20120512, end: 20120513
  2. CYCLOPHOSPHAMIDE [Suspect]
     Route: 042
     Dates: start: 20120512, end: 20120513
  3. SULFAMETHOXAZOLE-TRIMETHOPRIM [Concomitant]
     Indication: ALLOGENIC BONE MARROW TRANSPLANTATION THERAPY
  4. HYDROMORPHONE [Concomitant]
  5. MULTIVITAMIN [Concomitant]
  6. RANITIDINE [Concomitant]
  7. LORAZEPAM [Concomitant]
  8. LORAZEPAM [Concomitant]
  9. ONDANSETRON [Concomitant]
  10. MEANA [Concomitant]

REACTIONS (1)
  - Cystitis haemorrhagic [None]
